FAERS Safety Report 18708620 (Version 3)
Quarter: 2021Q1

REPORT INFORMATION
  Report Type: Spontaneous
  Country: BE (occurrence: BE)
  Receive Date: 20210106
  Receipt Date: 20210119
  Transmission Date: 20210419
  Serious: Yes (Hospitalization, Other)
  Sender: FDA-Public Use
  Company Number: BE-PFIZER INC-2020521243

PATIENT
  Age: 34 Year
  Sex: Female
  Weight: 77 kg

DRUGS (14)
  1. TOCILIZUMAB. [Concomitant]
     Active Substance: TOCILIZUMAB
     Indication: STILL^S DISEASE
     Dosage: 8 MG/KG
     Dates: start: 201907
  2. METHYLPREDNISOLONE. [Suspect]
     Active Substance: METHYLPREDNISOLONE
     Dosage: 96 MG, 1X/DAY
     Dates: start: 201908
  3. ANAKINRA [Concomitant]
     Active Substance: ANAKINRA
     Dosage: 100 MG, 2X/DAY
     Dates: start: 201908
  4. METHYLPREDNISOLONE. [Suspect]
     Active Substance: METHYLPREDNISOLONE
     Dosage: 1 G, 1X/DAY
     Dates: start: 201905, end: 201905
  5. CYCLOSPORINE A [Concomitant]
     Active Substance: CYCLOSPORINE
     Indication: STILL^S DISEASE
     Dosage: UNK
     Dates: start: 201906
  6. METHYLPREDNISOLONE. [Suspect]
     Active Substance: METHYLPREDNISOLONE
     Dosage: 1 G, 1X/DAY
     Dates: start: 201906, end: 201906
  7. ANAKINRA [Concomitant]
     Active Substance: ANAKINRA
     Indication: STILL^S DISEASE
     Dosage: 100 MG, 1X/DAY
     Dates: start: 201907
  8. METHYLPREDNISOLONE. [Suspect]
     Active Substance: METHYLPREDNISOLONE
     Indication: STILL^S DISEASE
     Dosage: 128 MG, 1X/DAY
     Dates: start: 201908
  9. METHYLPREDNISOLONE. [Suspect]
     Active Substance: METHYLPREDNISOLONE
     Dosage: 160 MG/DAY
     Dates: start: 201907, end: 201908
  10. METHYLPREDNISOLONE. [Suspect]
     Active Substance: METHYLPREDNISOLONE
     Dosage: 128 MG/DAY
     Dates: start: 201906, end: 201907
  11. METHYLPREDNISOLONE. [Suspect]
     Active Substance: METHYLPREDNISOLONE
     Dosage: 2.5 MG/KG, 1X/DAY
  12. ANAKINRA [Concomitant]
     Active Substance: ANAKINRA
     Dosage: 300 MG, 1X/DAY
     Dates: start: 201908, end: 201908
  13. ANAKINRA [Concomitant]
     Active Substance: ANAKINRA
     Dosage: 200 MG, 1X/DAY
     Dates: start: 201907
  14. METHYLPREDNISOLONE. [Suspect]
     Active Substance: METHYLPREDNISOLONE
     Dosage: 64 MG/DAY
     Dates: start: 201905, end: 201905

REACTIONS (2)
  - Uterine haemorrhage [Recovered/Resolved]
  - Ovarian haemorrhage [Recovered/Resolved]

NARRATIVE: CASE EVENT DATE: 2019
